FAERS Safety Report 7723801-0 (Version None)
Quarter: 2011Q3

REPORT INFORMATION
  Report Type: 
  Country: None (occurrence: None)
  Receive Date: 20110901
  Receipt Date: 20110818
  Transmission Date: 20111222
  Serious: Yes (Other)
  Sender: FDA-Public Use
  Company Number: PHHY2011EC75714

PATIENT
  Sex: Female

DRUGS (8)
  1. ALDACTONE [Concomitant]
  2. PROPRANOLOL [Concomitant]
     Dosage: UNK UKN, UNK
  3. LACTULOSE [Concomitant]
  4. PROTEIN SUPPLEMENTS [Concomitant]
  5. HEPA-MERZ [Concomitant]
  6. DIOVAN HCT [Suspect]
     Indication: HYPERTENSION
     Dosage: 1 DF, (160/12.5 MG)
     Dates: start: 20101026
  7. LANZOPRAL [Concomitant]
  8. ANALGAN [Concomitant]

REACTIONS (4)
  - FALL [None]
  - VISUAL IMPAIRMENT [None]
  - DYSPEPSIA [None]
  - TRAUMATIC HAEMATOMA [None]
